FAERS Safety Report 21359694 (Version 3)
Quarter: 2023Q1

REPORT INFORMATION
  Report Type: Spontaneous
  Country: US (occurrence: US)
  Receive Date: 20220921
  Receipt Date: 20230214
  Transmission Date: 20230418
  Serious: Yes (Hospitalization, Other)
  Sender: FDA-Public Use
  Company Number: US-PFIZER INC-202201173596

PATIENT
  Age: 56 Year
  Sex: Female
  Weight: 84.354 kg

DRUGS (3)
  1. PANTOPRAZOLE [Suspect]
     Active Substance: PANTOPRAZOLE
     Indication: Hyperchlorhydria
     Dosage: UNK (UNKNOWN DOSE INJECTED INTO HER)
     Route: 042
  2. PANTOPRAZOLE [Suspect]
     Active Substance: PANTOPRAZOLE
     Dosage: PRODUCTS WERE MIXED TOGETHER SO SHE KNOWS THAT 40 MG
     Route: 042
  3. PROTONIX [Suspect]
     Active Substance: PANTOPRAZOLE SODIUM
     Indication: Hyperchlorhydria
     Dosage: PRODUCTS WERE MIXED TOGETHER SO SHE KNOWS THAT 40 MG
     Route: 042

REACTIONS (32)
  - Seizure [Recovering/Resolving]
  - Retinal detachment [Unknown]
  - Pyelonephritis [Unknown]
  - Meningococcal sepsis [Not Recovered/Not Resolved]
  - Skin disorder [Not Recovered/Not Resolved]
  - Burning sensation [Not Recovered/Not Resolved]
  - Skin discolouration [Not Recovered/Not Resolved]
  - Malaise [Unknown]
  - Formication [Unknown]
  - Dry skin [Unknown]
  - Frustration tolerance decreased [Unknown]
  - Scar [Unknown]
  - Pain [Unknown]
  - Amnesia [Unknown]
  - Dilated pores [Unknown]
  - Varicella [Unknown]
  - Pruritus [Not Recovered/Not Resolved]
  - Rash [Not Recovered/Not Resolved]
  - Product administration error [Unknown]
  - Asthenia [Unknown]
  - Musculoskeletal stiffness [Unknown]
  - Neck pain [Unknown]
  - Hypersensitivity [Unknown]
  - Overdose [Unknown]
  - Nerve injury [Unknown]
  - Stomatitis [Unknown]
  - Swelling face [Unknown]
  - Eye irritation [Unknown]
  - Ear disorder [Unknown]
  - Muscle disorder [Unknown]
  - Paraesthesia [Unknown]
  - Vitamin B12 deficiency [Unknown]

NARRATIVE: CASE EVENT DATE: 20211028
